FAERS Safety Report 7382063 (Version 2)
Quarter: 2013Q4

REPORT INFORMATION
  Report Type: Spontaneous
  Country: US (occurrence: US)
  Receive Date: 20100510
  Receipt Date: 20131217
  Transmission Date: 20140711
  Serious: No
  Sender: FDA-Public Use
  Company Number: US-JNJFOC-20100501080

PATIENT
  Sex: Male
  Weight: 63.5 kg

DRUGS (8)
  1. DURAGESIC [Suspect]
     Indication: PAIN
     Route: 062
  2. DURAGESIC [Suspect]
     Indication: PAIN
     Route: 062
     Dates: start: 200701
  3. DURAGESIC [Suspect]
     Indication: PAIN
     Route: 062
     Dates: end: 201004
  4. AMBIEN [Concomitant]
     Indication: SLEEP DISORDER
     Route: 048
     Dates: start: 2002
  5. KLONOPIN [Concomitant]
     Indication: DEPRESSION
     Route: 048
     Dates: start: 2000
  6. CREON 10 [Concomitant]
     Indication: DYSPEPSIA
     Dosage: 10 TWO EACH WITH MEAL
     Route: 048
     Dates: start: 1998
  7. EFFEXOR [Concomitant]
     Indication: DEPRESSION
     Route: 048
     Dates: start: 2000
  8. SECTRAL [Concomitant]
     Indication: HYPERTENSION
     Route: 048
     Dates: start: 2002

REACTIONS (3)
  - Pain [Recovered/Resolved]
  - Incorrect drug administration rate [Recovered/Resolved]
  - Product quality issue [Unknown]
